FAERS Safety Report 5090444-X (Version None)
Quarter: 2006Q3

REPORT INFORMATION
  Report Type: 
  Country: None (occurrence: None)
  Receive Date: 20060828
  Receipt Date: 20060505
  Transmission Date: 20061208
  Serious: No
  Sender: FDA-Public Use
  Company Number: US-GLAXOSMITHKLINE-A0604490A

PATIENT
  Age: 70 Year
  Sex: Female

DRUGS (11)
  1. WELLBUTRIN XL [Suspect]
     Indication: DEPRESSION
     Dosage: 450MG PER DAY
     Route: 048
     Dates: start: 20060201, end: 20060502
  2. METFORMIN HCL [Concomitant]
     Dosage: 2G PER DAY
     Route: 048
  3. GLIPIZIDE [Concomitant]
     Dosage: 5MG PER DAY
     Route: 048
  4. DIOVAN [Concomitant]
     Indication: HYPERTENSION
     Dosage: 160MCG PER DAY
     Route: 048
     Dates: start: 20060427
  5. BENICAR HCT [Concomitant]
     Indication: HYPERTENSION
     Dates: start: 20041220, end: 20060426
  6. LEVOXYL [Concomitant]
     Indication: HYPOTHYROIDISM
     Dosage: 175MCG PER DAY
     Route: 048
  7. ASPIRIN [Concomitant]
     Dosage: 81MG PER DAY
     Route: 048
  8. ALLEGRA [Concomitant]
     Indication: MULTIPLE ALLERGIES
     Dosage: 180MG PER DAY
     Route: 048
  9. ZOCOR [Concomitant]
     Indication: BLOOD CHOLESTEROL INCREASED
     Dosage: 40MG PER DAY
     Route: 048
     Dates: start: 20041012
  10. PROPOXYPHENE HYDROCHLORIDE [Concomitant]
  11. PENICILLIN [Concomitant]
     Dates: start: 20060426

REACTIONS (6)
  - ANOREXIA [None]
  - DYSGEUSIA [None]
  - MOUTH ULCERATION [None]
  - NERVOUSNESS [None]
  - STOMATITIS [None]
  - WEIGHT DECREASED [None]
